FAERS Safety Report 25077631 (Version 3)
Quarter: 2025Q2

REPORT INFORMATION
  Report Type: Spontaneous
  Country: ES (occurrence: ES)
  Receive Date: 20250314
  Receipt Date: 20250626
  Transmission Date: 20250717
  Serious: Yes (Other)
  Sender: CELLTRION
  Company Number: ES-AMGEN-ESPSP2024182904

PATIENT

DRUGS (2)
  1. ADALIMUMAB [Suspect]
     Active Substance: ADALIMUMAB
     Indication: Crohn^s disease
     Route: 058
  2. ADALIMUMAB [Suspect]
     Active Substance: ADALIMUMAB
     Route: 065

REACTIONS (3)
  - Condition aggravated [Unknown]
  - Leishmaniasis [Recovered/Resolved]
  - Cutaneous leishmaniasis [Recovered/Resolved]
